FAERS Safety Report 4554417-5 (Version None)
Quarter: 2005Q1

REPORT INFORMATION
  Report Type: 
  Country: None (occurrence: None)
  Receive Date: 20050118
  Receipt Date: 20041215
  Transmission Date: 20050727
  Serious: Yes (Hospitalization)
  Sender: FDA-Public Use
  Company Number: 200413969JP

PATIENT
  Age: 62 Year
  Sex: Male

DRUGS (1)
  1. RILUTEK [Suspect]
     Indication: AMYOTROPHIC LATERAL SCLEROSIS
     Route: 048
     Dates: start: 20031020

REACTIONS (10)
  - C-REACTIVE PROTEIN INCREASED [None]
  - COUGH [None]
  - DYSPNOEA [None]
  - LUNG DISORDER [None]
  - LYMPHOCYTE STIMULATION TEST POSITIVE [None]
  - PO2 DECREASED [None]
  - PULMONARY TOXICITY [None]
  - PYREXIA [None]
  - THERAPY NON-RESPONDER [None]
  - WHITE BLOOD CELL COUNT INCREASED [None]
